FAERS Safety Report 4323176-3 (Version None)
Quarter: 2004Q1

REPORT INFORMATION
  Report Type: 
  Country: None (occurrence: None)
  Receive Date: 20040322
  Receipt Date: 20040308
  Transmission Date: 20041129
  Serious: Yes (Death, Other)
  Sender: FDA-Public Use
  Company Number: 2004016393

PATIENT
  Age: 68 Year
  Sex: Male

DRUGS (2)
  1. ATORVASTATIN [Suspect]
     Indication: ILL-DEFINED DISORDER
  2. SIMVASTATIN [Suspect]
     Indication: ILL-DEFINED DISORDER

REACTIONS (3)
  - CONDITION AGGRAVATED [None]
  - PULMONARY FIBROSIS [None]
  - RESPIRATORY FAILURE [None]
